FAERS Safety Report 11509889 (Version 1)
Quarter: 2015Q3

REPORT INFORMATION
  Report Type: Spontaneous
  Country: US (occurrence: US)
  Receive Date: 20150915
  Receipt Date: 20150915
  Transmission Date: 20151125
  Serious: No
  Sender: FDA-Public Use
  Company Number: US-JNJFOC-20150620597

PATIENT
  Age: 66 Year
  Sex: Female
  Weight: 77.57 kg

DRUGS (2)
  1. MOTRIN IB [Suspect]
     Active Substance: IBUPROFEN
     Indication: BACK PAIN
     Route: 048
  2. MOTRIN IB [Suspect]
     Active Substance: IBUPROFEN
     Indication: NECK PAIN
     Route: 048

REACTIONS (2)
  - Paraesthesia [Recovered/Resolved]
  - Rash [Recovered/Resolved]
